FAERS Safety Report 20993610 (Version 1)
Quarter: 2022Q2

REPORT INFORMATION
  Report Type: Spontaneous
  Country: US (occurrence: None)
  Receive Date: 20220621
  Receipt Date: 20220621
  Transmission Date: 20220721
  Serious: Yes (Disabling, Other)
  Sender: FDA-Public Use
  Company Number: None

PATIENT
  Age: 24 Year
  Sex: Female
  Weight: 110.25 kg

DRUGS (8)
  1. LUPRON DEPOT [Suspect]
     Active Substance: LEUPROLIDE ACETATE
     Indication: Endometriosis
     Dosage: OTHER QUANTITY : 1 INJECTION(S);?OTHER FREQUENCY : 1X MONTH;?OTHER ROUTE : INJECTION INTO BUTTOCK;?
     Route: 050
  2. VALSARTAN [Concomitant]
     Active Substance: VALSARTAN
  3. SPIRONOLACTONE [Concomitant]
  4. CYANOCOBALAMIN [Concomitant]
     Active Substance: CYANOCOBALAMIN
  5. PANTOPRAZOLE [Concomitant]
     Active Substance: PANTOPRAZOLE
  6. Woman^s Multivitamin [Concomitant]
  7. VITAMIN C [Concomitant]
     Active Substance: ASCORBIC ACID
  8. PROBIOTICS NOS [Concomitant]
     Active Substance: PROBIOTICS NOS

REACTIONS (21)
  - Weight increased [None]
  - Depression [None]
  - Migraine [None]
  - Myalgia [None]
  - Arthralgia [None]
  - Suicidal ideation [None]
  - Hypertension [None]
  - Fatigue [None]
  - Fibromyalgia [None]
  - Arthritis [None]
  - Diplopia [None]
  - Dry eye [None]
  - Irritable bowel syndrome [None]
  - Meningioma [None]
  - Pituitary tumour [None]
  - Anaemia [None]
  - Cardiac failure [None]
  - Nasopharyngitis [None]
  - Influenza [None]
  - Mood swings [None]
  - Hot flush [None]

NARRATIVE: CASE EVENT DATE: 19920901
